FAERS Safety Report 18961535 (Version 2)
Quarter: 2021Q2

REPORT INFORMATION
  Report Type: Spontaneous
  Country: JP (occurrence: JP)
  Receive Date: 20210303
  Receipt Date: 20210513
  Transmission Date: 20210717
  Serious: Yes (Other)
  Sender: FDA-Public Use
  Company Number: JP-ASTELLAS-2021JP002312AA

PATIENT
  Age: 58 Year
  Sex: Female

DRUGS (2)
  1. XOSPATA [Suspect]
     Active Substance: GILTERITINIB
     Indication: ACUTE MYELOID LEUKAEMIA
     Route: 048
     Dates: start: 20200530
  2. XOSPATA [Suspect]
     Active Substance: GILTERITINIB
     Dosage: UNK UNK, UNKNOWN FREQ.
     Route: 048
     Dates: end: 20210430

REACTIONS (6)
  - Hypernatraemia [Not Recovered/Not Resolved]
  - Cytopenia [Not Recovered/Not Resolved]
  - Cytogenetic abnormality [Unknown]
  - Differentiation syndrome [Unknown]
  - Hypokalaemia [Not Recovered/Not Resolved]
  - Liver disorder [Unknown]
